FAERS Safety Report 19048647 (Version 1)
Quarter: 2021Q1

REPORT INFORMATION
  Report Type: Spontaneous
  Country: ES (occurrence: ES)
  Receive Date: 20210323
  Receipt Date: 20210323
  Transmission Date: 20210420
  Serious: Yes (Other)
  Sender: FDA-Public Use
  Company Number: ES-ELI_LILLY_AND_COMPANY-ES202103005108

PATIENT
  Age: 77 Year
  Sex: Female

DRUGS (4)
  1. XERISTAR [Suspect]
     Active Substance: DULOXETINE HYDROCHLORIDE
     Indication: DEPRESSION
     Dosage: UNK UNK, UNKNOWN
     Route: 065
  2. ADOLONTA [Suspect]
     Active Substance: TRAMADOL HYDROCHLORIDE
     Indication: PAIN
     Dosage: UNK, UNKNOWN
     Route: 065
  3. CANDESARTAN. [Concomitant]
     Active Substance: CANDESARTAN
     Indication: HYPERTENSION
     Dosage: UNK, UNKNOWN
     Route: 065
  4. PLANTABEN [PLANTAGO OVATA] [Concomitant]
     Indication: CONSTIPATION
     Dosage: 3 SATCHES/ DAY
     Route: 065

REACTIONS (6)
  - Mouth haemorrhage [Not Recovered/Not Resolved]
  - Eructation [Not Recovered/Not Resolved]
  - Constipation [Not Recovered/Not Resolved]
  - Dyspnoea [Not Recovered/Not Resolved]
  - Dry mouth [Not Recovered/Not Resolved]
  - Dysgeusia [Not Recovered/Not Resolved]
